FAERS Safety Report 7341778-7 (Version None)
Quarter: 2011Q1

REPORT INFORMATION
  Report Type: 
  Country: None (occurrence: None)
  Receive Date: 20110309
  Receipt Date: 20110304
  Transmission Date: 20110831
  Serious: Yes (Hospitalization, Other)
  Sender: FDA-Public Use
  Company Number: US-PFIZER INC-2010182464

PATIENT
  Sex: Female

DRUGS (13)
  1. GABAPENTIN [Concomitant]
     Indication: RHEUMATOID ARTHRITIS
     Dosage: UNK
     Dates: start: 20040901, end: 20071201
  2. TYLENOL W/ CODEINE NO. 2 [Concomitant]
     Indication: BACK PAIN
  3. ELAVIL [Concomitant]
     Indication: PAIN
     Dosage: UNK
     Dates: start: 19900101, end: 20000209
  4. ZOCOR [Concomitant]
     Indication: DYSLIPIDAEMIA
     Dosage: UNK
     Dates: start: 20060601, end: 20071201
  5. LOMOTIL [Concomitant]
     Indication: IRRITABLE BOWEL SYNDROME
     Dosage: UNK
     Dates: end: 20090101
  6. CHANTIX [Suspect]
     Indication: SMOKING CESSATION THERAPY
     Dosage: STARTER PACK,
     Dates: start: 20070701, end: 20071001
  7. TYLENOL W/ CODEINE NO. 2 [Concomitant]
     Indication: HEADACHE
  8. SPIRIVA [Concomitant]
     Indication: CHRONIC OBSTRUCTIVE PULMONARY DISEASE
     Dosage: UNK
     Dates: start: 20070401, end: 20071101
  9. TYLENOL W/ CODEINE NO. 2 [Concomitant]
     Indication: ARTHRITIS
     Dosage: UNK
     Dates: start: 20061201, end: 20091001
  10. ZITHROMAX [Concomitant]
     Indication: UPPER RESPIRATORY TRACT CONGESTION
     Dosage: UNK
     Dates: start: 20010801, end: 20090901
  11. ZITHROMAX [Concomitant]
     Indication: UPPER RESPIRATORY TRACT INFECTION
  12. GABAPENTIN [Concomitant]
     Indication: NEUROPATHY PERIPHERAL
  13. PREMARIN [Concomitant]
     Indication: HORMONE REPLACEMENT THERAPY
     Dosage: UNK
     Dates: start: 20061201, end: 20100601

REACTIONS (20)
  - HALLUCINATION, AUDITORY [None]
  - PSYCHOTIC DISORDER [None]
  - JUDGEMENT IMPAIRED [None]
  - SCHIZOPHRENIA [None]
  - AGGRESSION [None]
  - AMNESIA [None]
  - POST-TRAUMATIC STRESS DISORDER [None]
  - ANXIETY [None]
  - DYSARTHRIA [None]
  - HOMICIDAL IDEATION [None]
  - GRANDIOSITY [None]
  - ABNORMAL BEHAVIOUR [None]
  - BIPOLAR DISORDER [None]
  - MANIA [None]
  - HALLUCINATION, VISUAL [None]
  - LOGORRHOEA [None]
  - DELUSION [None]
  - CONVULSION [None]
  - MENTAL DISORDER [None]
  - CRYING [None]
